FAERS Safety Report 6428188-1 (Version None)
Quarter: 2009Q4

REPORT INFORMATION
  Report Type: 
  Country: None (occurrence: None)
  Receive Date: 20091030
  Receipt Date: 20091016
  Transmission Date: 20100525
  Serious: Yes (Death, Hospitalization)
  Sender: FDA-Public Use
  Company Number: 1000008479

PATIENT
  Age: 70 Year
  Sex: Female

DRUGS (12)
  1. CITALOPRAM HYDROBROMIDE [Suspect]
     Dosage: 10 MG (10 MG, 1 IN 1 D), ORAL
     Route: 048
     Dates: end: 20090608
  2. DIGOXIN [Suspect]
     Indication: ATRIAL FIBRILLATION
     Dosage: 0.13 MG, ORAL
     Route: 048
     Dates: start: 20090401
  3. ENALAPRIL MALEATE [Suspect]
     Dosage: (20 MG), ORAL
     Route: 048
     Dates: start: 20090401
  4. LIPITOR [Concomitant]
  5. NEORECORMON (SOLUTION) [Concomitant]
  6. OMEPRAZOL (TABLETS) [Concomitant]
  7. SIMVASTATIN [Concomitant]
  8. BEHEPAN (TABLETS) [Concomitant]
  9. FURIX (TABLETS) [Concomitant]
  10. ASPIRIN [Concomitant]
  11. GLYTRIN (SPRAY (NOT INHALATION) ) [Concomitant]
  12. PLAVIX [Concomitant]

REACTIONS (9)
  - ALANINE AMINOTRANSFERASE INCREASED [None]
  - BLOOD ALKALINE PHOSPHATASE INCREASED [None]
  - BLOOD CREATININE INCREASED [None]
  - CARDIAC ARREST [None]
  - CARDIOACTIVE DRUG LEVEL INCREASED [None]
  - DIALYSIS [None]
  - FRUCTOSAMINE INCREASED [None]
  - NAUSEA [None]
  - RENAL HYPERTROPHY [None]
